FAERS Safety Report 5133386-3 (Version None)
Quarter: 2006Q4

REPORT INFORMATION
  Report Type: 
  Country: None (occurrence: None)
  Receive Date: 20061024
  Receipt Date: 20061010
  Transmission Date: 20070319
  Serious: Yes (Life-Threatening, Hospitalization)
  Sender: FDA-Public Use
  Company Number: PHBS2006CN16325

PATIENT
  Age: 43 Year
  Sex: Male

DRUGS (1)
  1. LAMISIL [Suspect]
     Indication: TINEA PEDIS
     Dosage: 250 MG, QD
     Route: 048
     Dates: start: 20060801, end: 20060901

REACTIONS (5)
  - ALANINE AMINOTRANSFERASE INCREASED [None]
  - ASPARTATE AMINOTRANSFERASE INCREASED [None]
  - ASTHENIA [None]
  - BLOOD BILIRUBIN INCREASED [None]
  - PRURITUS [None]
